FAERS Safety Report 4596366-2 (Version None)
Quarter: 2005Q1

REPORT INFORMATION
  Report Type: 
  Country: None (occurrence: None)
  Receive Date: 20050228
  Receipt Date: 20041215
  Transmission Date: 20050727
  Serious: Yes (Hospitalization)
  Sender: FDA-Public Use
  Company Number: 2004117033

PATIENT
  Age: 76 Year
  Sex: Male

DRUGS (5)
  1. ARTHROTEC [Suspect]
     Indication: ILL-DEFINED DISORDER
     Dosage: 75 / 0.2 MG ORAL
     Route: 048
     Dates: end: 20041114
  2. VENLAFAXINE HCL [Suspect]
     Indication: ILL-DEFINED DISORDER
     Dosage: 75 MG (75 MG DAILY) ORAL
     Route: 048
     Dates: end: 20041114
  3. DIGOXIN [Concomitant]
  4. LEKOVIT CA (CALCIUM CARBONATE, COLECALCIFEROL) [Concomitant]
  5. LORAZEPAM [Concomitant]

REACTIONS (5)
  - FACIAL NERVE DISORDER [None]
  - FALL [None]
  - HEAD INJURY [None]
  - HEMIPARESIS [None]
  - SENSORIMOTOR DISORDER [None]
